FAERS Safety Report 10497717 (Version 1)
Quarter: 2014Q4

REPORT INFORMATION
  Report Type: Spontaneous
  Country: US (occurrence: None)
  Receive Date: 20141003
  Receipt Date: 20141003
  Transmission Date: 20150528
  Serious: Yes (Death)
  Sender: FDA-Public Use
  Company Number: None

PATIENT
  Age: 64 Year
  Sex: Male
  Weight: 120 kg

DRUGS (1)
  1. WARFARIN [Suspect]
     Active Substance: WARFARIN
     Indication: ATRIAL FIBRILLATION
     Route: 048
     Dates: start: 20110101, end: 20131118

REACTIONS (4)
  - Subdural haematoma [None]
  - Brain midline shift [None]
  - Fall [None]
  - Haemorrhage [None]

NARRATIVE: CASE EVENT DATE: 20131119
